FAERS Safety Report 18335108 (Version 2)
Quarter: 2020Q4

REPORT INFORMATION
  Report Type: Spontaneous
  Country: US (occurrence: US)
  Receive Date: 20201001
  Receipt Date: 20201113
  Transmission Date: 20210113
  Serious: No
  Sender: FDA-Public Use
  Company Number: US-MALLINCKRODT-T202004750

PATIENT
  Age: 60 Year

DRUGS (1)
  1. INOMAX [Suspect]
     Active Substance: NITRIC OXIDE
     Indication: PRODUCT USED FOR UNKNOWN INDICATION
     Dosage: UNK (INHALATION)
     Route: 055
     Dates: start: 20200908, end: 20200908

REACTIONS (1)
  - Product use issue [Unknown]

NARRATIVE: CASE EVENT DATE: 20200908
